FAERS Safety Report 18076752 (Version 3)
Quarter: 2020Q4

REPORT INFORMATION
  Report Type: Report from Study
  Country: ES (occurrence: ES)
  Receive Date: 20200728
  Receipt Date: 20201029
  Transmission Date: 20210113
  Serious: Yes (Hospitalization, Other)
  Sender: FDA-Public Use
  Company Number: ES-BEH-2020120257

PATIENT
  Age: 62 Year
  Sex: Male
  Weight: 74 kg

DRUGS (5)
  1. RIASTAP [Suspect]
     Active Substance: FIBRINOGEN HUMAN
     Dosage: 4 GRAM
     Route: 042
     Dates: start: 20190922
  2. PREDNISONA [Concomitant]
     Active Substance: PREDNISONE
     Dosage: 15 MILLIGRAM, QD, 24H
     Route: 065
  3. SEPTRIN [Concomitant]
     Active Substance: SULFAMETHOXAZOLE\TRIMETHOPRIM
     Dosage: 160/800 MG, LU.MX.VI
     Route: 065
  4. TACROLIMUS. [Concomitant]
     Active Substance: TACROLIMUS
     Dosage: 3 MILLIGRAM, QD, 24H
     Route: 065
  5. RIASTAP [Suspect]
     Active Substance: FIBRINOGEN HUMAN
     Indication: LIVER TRANSPLANT
     Dosage: UNK GRAM, TOT
     Route: 042
     Dates: start: 20190922, end: 20190922

REACTIONS (6)
  - Hepatic haematoma [Recovered/Resolved]
  - Chest pain [Recovered/Resolved]
  - Postoperative respiratory failure [Recovered/Resolved]
  - Pneumonia [Recovered/Resolved]
  - Pneumonia cytomegaloviral [Recovered/Resolved]
  - Haemorrhage [Recovered/Resolved]

NARRATIVE: CASE EVENT DATE: 20190926
